FAERS Safety Report 14503623 (Version 1)
Quarter: 2018Q1

REPORT INFORMATION
  Report Type: Spontaneous
  Country: US (occurrence: US)
  Receive Date: 20180208
  Receipt Date: 20180208
  Transmission Date: 20180509
  Serious: No
  Sender: FDA-Public Use
  Company Number: US-JNJFOC-20171205942

PATIENT
  Sex: Male

DRUGS (16)
  1. IMBRUVICA [Suspect]
     Active Substance: IBRUTINIB
     Indication: PRODUCT USED FOR UNKNOWN INDICATION
     Route: 048
  2. AMIODARONE [Concomitant]
     Active Substance: AMIODARONE
  3. OMEPRAZOLE. [Concomitant]
     Active Substance: OMEPRAZOLE
  4. LANTUS [Concomitant]
     Active Substance: INSULIN GLARGINE
  5. ATORVASTATIN [Concomitant]
     Active Substance: ATORVASTATIN
  6. NITROGLYCERIN. [Concomitant]
     Active Substance: NITROGLYCERIN
  7. CLOPIDOGREL [Concomitant]
     Active Substance: CLOPIDOGREL BISULFATE
  8. IMBRUVICA [Suspect]
     Active Substance: IBRUTINIB
     Indication: PRODUCT USED FOR UNKNOWN INDICATION
     Dosage: 140 MG, QOD; 1 CAPSULE BY MOUTH ON MONDAY, WEDNESDAY, FRIDAY, AND SUNDAY
     Route: 048
     Dates: start: 20161118
  9. METOPROLOL TARTRATE. [Concomitant]
     Active Substance: METOPROLOL TARTRATE
  10. QUETIAPINE. [Concomitant]
     Active Substance: QUETIAPINE
  11. PROCHLORPERAZINE. [Concomitant]
     Active Substance: PROCHLORPERAZINE
  12. GLYBURIDE. [Concomitant]
     Active Substance: GLYBURIDE
  13. LISINOPRIL. [Concomitant]
     Active Substance: LISINOPRIL
  14. METFORMIN [Concomitant]
     Active Substance: METFORMIN HYDROCHLORIDE
  15. IMBRUVICA [Suspect]
     Active Substance: IBRUTINIB
     Indication: PRODUCT USED FOR UNKNOWN INDICATION
     Dosage: 140 MG, QOD; 1 CAPSULE BY MOUTH ON MONDAY, WEDNESDAY, FRIDAY, AND SUNDAY
     Route: 048
     Dates: start: 20171127
  16. LATANOPROST. [Concomitant]
     Active Substance: LATANOPROST

REACTIONS (1)
  - Dizziness [Unknown]
